FAERS Safety Report 6159523-X (Version None)
Quarter: 2009Q2

REPORT INFORMATION
  Report Type: 
  Country: None (occurrence: None)
  Receive Date: 20090420
  Receipt Date: 20080624
  Transmission Date: 20091009
  Serious: No
  Sender: FDA-Public Use
  Company Number: US-ABBOTT-08P-163-0459618-00

PATIENT
  Sex: Male

DRUGS (2)
  1. LUPRON DEPOT-PED [Suspect]
     Indication: PRECOCIOUS PUBERTY
  2. LUPRON DEPOT-PED [Suspect]
     Dates: end: 20080601

REACTIONS (3)
  - DRUG INEFFECTIVE [None]
  - GROWTH ACCELERATED [None]
  - WEIGHT INCREASED [None]
